FAERS Safety Report 4723182-0 (Version None)
Quarter: 2005Q3

REPORT INFORMATION
  Report Type: 
  Country: None (occurrence: None)
  Receive Date: 20050719
  Receipt Date: 20040820
  Transmission Date: 20060218
  Serious: Yes (Hospitalization)
  Sender: FDA-Public Use
  Company Number: 2004231196US

PATIENT
  Age: 37 Year
  Sex: Male

DRUGS (1)
  1. CELEBREX [Suspect]
     Dosage: 200 MG, QD, UNK
     Route: 065
     Dates: start: 19990807

REACTIONS (1)
  - CHEST PAIN [None]
